FAERS Safety Report 7986731-5 (Version None)
Quarter: 2011Q4

REPORT INFORMATION
  Report Type: 
  Country: None (occurrence: None)
  Receive Date: 20111216
  Receipt Date: 20110311
  Transmission Date: 20120403
  Serious: No
  Sender: FDA-Public Use
  Company Number: US-BRISTOL-MYERS SQUIBB COMPANY-15556897

PATIENT
  Age: 20 Year
  Sex: Female

DRUGS (6)
  1. ABILIFY [Suspect]
     Indication: MOTOR NEURONE DISEASE
     Dosage: INCREASE TO 5 MG ,16NOV2010.
     Route: 048
     Dates: start: 20101018
  2. ABILIFY [Suspect]
     Indication: BIPOLAR DISORDER
     Dosage: INCREASE TO 5 MG ,16NOV2010.
     Route: 048
     Dates: start: 20101018
  3. CLONAZEPAM [Concomitant]
  4. ADDERALL 5 [Concomitant]
  5. LAMICTAL [Concomitant]
  6. LEXAPRO [Concomitant]

REACTIONS (1)
  - BRADYCARDIA [None]
